FAERS Safety Report 8737504 (Version 2)
Quarter: 2012Q4

REPORT INFORMATION
  Report Type: 
  Country: JP (occurrence: JP)
  Receive Date: 20120822
  Receipt Date: 20120913
  Transmission Date: 20130627
  Serious: Yes (Death)
  Sender: FDA-Public Use
  Company Number: JP-009507513-1208JPN000840

PATIENT

DRUGS (9)
  1. TEMODAL [Suspect]
     Indication: GLIOBLASTOMA MULTIFORME
     Dosage: 42 mg/sqm, actual daily dose: 60mg
     Route: 048
     Dates: start: 20110909, end: 20110921
  2. BAKTAR [Suspect]
     Indication: ANTIFUNGAL PROPHYLAXIS
     Dosage: 1 DF, UNK
     Route: 048
     Dates: start: 20110909, end: 20110921
  3. PHENOBAL [Suspect]
     Indication: EPILEPSY
     Dosage: 30 mg, tid
     Route: 048
     Dates: start: 20110816, end: 20110921
  4. PRIMPERAN [Concomitant]
     Indication: PROPHYLAXIS OF NAUSEA AND VOMITING
     Dosage: 5 mg, UNK
     Route: 048
     Dates: start: 20110909, end: 20110929
  5. PREDONINE [Concomitant]
     Indication: BRAIN OEDEMA
     Dosage: 10 mg, qd
     Route: 048
     Dates: start: 20110816, end: 20110925
  6. PREDONINE [Concomitant]
     Dosage: 20 mg, qd, Other purpose of Predonine: Drug eruption
     Dates: start: 20110926, end: 20110929
  7. TAKEPRON [Concomitant]
     Indication: GASTROOESOPHAGEAL REFLUX DISEASE
     Dosage: 15 mg, qd
     Route: 048
     Dates: end: 20110929
  8. ARICEPT D [Concomitant]
     Indication: DEMENTIA
     Dosage: 5 mg, qd
     Route: 048
     Dates: end: 20110929
  9. HARNAL [Concomitant]
     Indication: BENIGN PROSTATIC HYPERPLASIA
     Dosage: 0.2 mg, qd
     Route: 048
     Dates: end: 20110929

REACTIONS (4)
  - Toxic epidermal necrolysis [Fatal]
  - Erythema multiforme [None]
  - Lung disorder [None]
  - Respiratory disorder [None]
